FAERS Safety Report 8871455 (Version 1)
Quarter: 2012Q4

REPORT INFORMATION
  Report Type: Spontaneous
  Country: US (occurrence: None)
  Receive Date: 20121026
  Receipt Date: 20121026
  Transmission Date: 20130627
  Serious: Yes (Death)
  Sender: FDA-Public Use
  Company Number: None

PATIENT
  Age: 71 Year
  Sex: Male
  Weight: 77.11 kg

DRUGS (1)
  1. ZOCOR [Suspect]
     Indication: HIGH CHOLESTEROL
     Dates: start: 20040120, end: 20120924

REACTIONS (5)
  - Hepatic enzyme increased [None]
  - Myalgia [None]
  - Quality of life decreased [None]
  - Blood sodium decreased [None]
  - Vascular rupture [None]
